FAERS Safety Report 9743275 (Version 1)
Quarter: 2013Q4

REPORT INFORMATION
  Report Type: Spontaneous
  Country: US (occurrence: US)
  Receive Date: 20131210
  Receipt Date: 20131210
  Transmission Date: 20140711
  Serious: No
  Sender: FDA-Public Use
  Company Number: US-GILEAD-2009-0025515

PATIENT
  Sex: Female

DRUGS (9)
  1. LETAIRIS [Suspect]
     Indication: PULMONARY ARTERIAL HYPERTENSION
     Route: 048
     Dates: start: 20091007, end: 20091117
  2. DIGOXIN [Concomitant]
  3. DEMADEX [Concomitant]
  4. XANAX [Concomitant]
  5. ALDACTONE [Concomitant]
  6. AMBIEN [Concomitant]
  7. SYNTHROID [Concomitant]
  8. COUMADIN [Concomitant]
  9. REMODULIN [Concomitant]

REACTIONS (1)
  - Swelling face [Unknown]
